FAERS Safety Report 8495872-8 (Version None)
Quarter: 2012Q3

REPORT INFORMATION
  Report Type: 
  Country: None (occurrence: None)
  Receive Date: 20120709
  Receipt Date: 20120705
  Transmission Date: 20120928
  Serious: No
  Sender: FDA-Public Use
  Company Number: US-PFIZER INC-2012161714

PATIENT
  Sex: Male
  Weight: 87.528 kg

DRUGS (13)
  1. LISINOPRIL [Concomitant]
     Dosage: 10 MG, UNK
  2. ASPIRIN [Concomitant]
     Dosage: 81 MG, 1X/DAY
  3. COREG [Concomitant]
     Dosage: 6.25 MG, 2X/DAY
  4. WELLBUTRIN [Concomitant]
     Dosage: 75 MG (150MG HALF A TABLET), 1X/DAY
  5. ACETAMINOPHEN [Concomitant]
     Dosage: 650 MG, 2X/DAY
  6. BENADRYL [Concomitant]
     Dosage: UNK, 1X/DAY
  7. ALLEGRA [Concomitant]
     Dosage: 60 MG, 1X/DAY
  8. LEXAPRO [Concomitant]
     Dosage: 10 MG, 1X/DAY
  9. TRICOR [Concomitant]
     Dosage: 145 MG, 1X/DAY
  10. NIASPAN [Concomitant]
     Dosage: UNK, 1X/DAY
  11. ROBAXIN [Concomitant]
     Dosage: UNK, 1X/DAY
  12. TOVIAZ [Suspect]
     Indication: HYPERTONIC BLADDER
     Dosage: 8 MG, 1X/DAY
     Route: 048
     Dates: start: 20120601, end: 20120601
  13. SIMVASTATIN [Concomitant]
     Dosage: UNK, 1X/DAY

REACTIONS (1)
  - DRY MOUTH [None]
